FAERS Safety Report 5784748-2 (Version None)
Quarter: 2008Q2

REPORT INFORMATION
  Report Type: 
  Country: None (occurrence: None)
  Receive Date: 20080605
  Receipt Date: 20080414
  Transmission Date: 20081010
  Serious: No
  Sender: FDA-Public Use
  Company Number: A0722524A

PATIENT
  Age: 31 Year
  Sex: Male

DRUGS (1)
  1. ALLI [Suspect]
     Dates: start: 20080404, end: 20080410

REACTIONS (1)
  - ABDOMINAL PAIN [None]
